FAERS Safety Report 4327901-7 (Version None)
Quarter: 2004Q1

REPORT INFORMATION
  Report Type: 
  Country: None (occurrence: None)
  Receive Date: 20040325
  Receipt Date: 20040309
  Transmission Date: 20041129
  Serious: Yes (Hospitalization)
  Sender: FDA-Public Use
  Company Number: AU-JNJFOC-20040304171

PATIENT
  Age: 79 Year
  Sex: Female

DRUGS (8)
  1. TRAMADOL HCL [Suspect]
     Dosage: 150 MG, IN 1 DAY, INJECTION
     Dates: start: 20030917, end: 20030918
  2. ZOFRAN [Suspect]
     Indication: NAUSEA
     Dosage: 4 MG, 3 IN 1 DAY, INJECTION
     Dates: start: 20030916, end: 20030918
  3. ZOFRAN [Suspect]
     Indication: VOMITING
     Dosage: 4 MG, 3 IN 1 DAY, INJECTION
     Dates: start: 20030916, end: 20030918
  4. CEPHAZOLIN SODIUM (CEFAZOLIN) INJECTION [Suspect]
     Indication: ANTIBACTERIAL PROPHYLAXIS
     Dosage: 1 G, 1 IN, INJECTION
     Dates: start: 20030917, end: 20030917
  5. COVERSYL (PERINDOPRIL) [Suspect]
     Indication: ESSENTIAL HYPERTENSION
     Dosage: 2 MG, ORAL
     Route: 048
     Dates: end: 20030924
  6. OPTIMOL (TIMOLOL MALEATE) [Concomitant]
  7. ACETAMINOPHEN [Concomitant]
  8. NEXIUM [Concomitant]

REACTIONS (3)
  - HYPONATRAEMIA [None]
  - INAPPROPRIATE ANTIDIURETIC HORMONE SECRETION [None]
  - POST PROCEDURAL COMPLICATION [None]
